FAERS Safety Report 24524249 (Version 8)
Quarter: 2024Q4

REPORT INFORMATION
  Report Type: Report from Study
  Country: IE (occurrence: IE)
  Receive Date: 20241018
  Receipt Date: 20241203
  Transmission Date: 20250114
  Serious: Yes (Hospitalization)
  Sender: ABBVIE
  Company Number: IE-ABBVIE-5952819

PATIENT
  Age: 65 Year
  Sex: Female

DRUGS (21)
  1. FOSCARBIDOPA\FOSLEVODOPA [Suspect]
     Active Substance: FOSCARBIDOPA\FOSLEVODOPA
     Indication: Parkinson^s disease
     Dosage: BASE RATE 0.21ML, HIGH RATE 0.23ML, LOW REMAINED AT 0.15, PRODUODOPA BASE RATE
     Route: 058
     Dates: start: 20241115, end: 20241115
  2. FOSCARBIDOPA\FOSLEVODOPA [Suspect]
     Active Substance: FOSCARBIDOPA\FOSLEVODOPA
     Dosage: PRODUODOPA BASE RATE; HIGH 0.29ML, BASE 0.27ML, LOW 0.21ML
     Route: 058
     Dates: start: 20241010, end: 20241010
  3. FOSCARBIDOPA\FOSLEVODOPA [Suspect]
     Active Substance: FOSCARBIDOPA\FOSLEVODOPA
     Dosage: BASE RATE 0.19ML, HIGH RATE 0.21ML, PRODUODOPA BASE RATE
     Route: 058
     Dates: start: 20241101, end: 20241101
  4. FOSCARBIDOPA\FOSLEVODOPA [Suspect]
     Active Substance: FOSCARBIDOPA\FOSLEVODOPA
     Dosage: LOW RATE 0.15ML, BASE RATE 0.17ML, HIGH RATE 0.21ML, PRODUODOPA BASE RATE
     Route: 058
     Dates: start: 20241021, end: 20241021
  5. FOSCARBIDOPA\FOSLEVODOPA [Suspect]
     Active Substance: FOSCARBIDOPA\FOSLEVODOPA
     Dosage: PRODUODOPA BASE RATE;HIGH RATE 0.27, BASE 0.21, LOW 0.18
     Route: 058
     Dates: start: 20241002, end: 20241002
  6. FOSCARBIDOPA\FOSLEVODOPA [Suspect]
     Active Substance: FOSCARBIDOPA\FOSLEVODOPA
     Dosage: PRODUODOPA BASE RATE; BASE INCREASE TO 0.32ML/PH
     Route: 058
     Dates: start: 20241003, end: 20241003
  7. FOSCARBIDOPA\FOSLEVODOPA [Suspect]
     Active Substance: FOSCARBIDOPA\FOSLEVODOPA
     Dosage: PRODUODOPA BASE RATE; BASE RATE REDUCED TO 0.30ML/PH
     Route: 058
     Dates: start: 20241004, end: 20241004
  8. FOSCARBIDOPA\FOSLEVODOPA [Suspect]
     Active Substance: FOSCARBIDOPA\FOSLEVODOPA
     Dosage: PRODUODOPA BASE RATE; HIGH RATE 0.29, BASE 0.27, LOW 0.24
     Route: 058
     Dates: start: 20241007, end: 20241007
  9. FOSCARBIDOPA\FOSLEVODOPA [Suspect]
     Active Substance: FOSCARBIDOPA\FOSLEVODOPA
     Dosage: PRODUODOPA BASE RATE; LOW RATE 0.16ML, BASE RATE 0.18ML
     Route: 058
     Dates: start: 20241011, end: 20241011
  10. FOSCARBIDOPA\FOSLEVODOPA [Suspect]
     Active Substance: FOSCARBIDOPA\FOSLEVODOPA
     Dosage: PRODUODOPA BASE RATE; HIGH 0.24, BASE 0.16, LOW 0.15
     Route: 058
     Dates: start: 20241014, end: 20241014
  11. FOSCARBIDOPA\FOSLEVODOPA [Suspect]
     Active Substance: FOSCARBIDOPA\FOSLEVODOPA
     Route: 058
     Dates: start: 20241015, end: 20241015
  12. FOSCARBIDOPA\FOSLEVODOPA [Suspect]
     Active Substance: FOSCARBIDOPA\FOSLEVODOPA
     Route: 058
     Dates: start: 20241016, end: 20241016
  13. FOSCARBIDOPA\FOSLEVODOPA [Suspect]
     Active Substance: FOSCARBIDOPA\FOSLEVODOPA
     Route: 058
     Dates: start: 20241017, end: 20241017
  14. FOSCARBIDOPA\FOSLEVODOPA [Suspect]
     Active Substance: FOSCARBIDOPA\FOSLEVODOPA
     Dosage: BASE RATE 0.21ML, HIGH RATE 0.23ML, LOW REMAINED AT 0.15, PRODUODOPA BASE RATE
     Route: 058
     Dates: start: 20241121, end: 20241121
  15. FOSCARBIDOPA\FOSLEVODOPA [Suspect]
     Active Substance: FOSCARBIDOPA\FOSLEVODOPA
     Dosage: BASE RATE 0.21ML, HIGH RATE 0.23ML, LOW REMAINED AT 0.15, PRODUODOPA BASE RATE
     Route: 058
     Dates: start: 20241128
  16. MAGNESIUM [Concomitant]
     Active Substance: MAGNESIUM
     Indication: Product used for unknown indication
     Route: 050
  17. KEMADRIN [Concomitant]
     Active Substance: PROCYCLIDINE HYDROCHLORIDE
     Indication: Product used for unknown indication
     Route: 050
  18. AMANTADINE [Concomitant]
     Active Substance: AMANTADINE
     Indication: Product used for unknown indication
     Route: 050
  19. IRON [Concomitant]
     Active Substance: IRON
     Indication: Product used for unknown indication
     Route: 050
  20. ZOPICLONE [Concomitant]
     Active Substance: ZOPICLONE
     Indication: Product used for unknown indication
     Dosage: AT NIGHT
     Route: 050
  21. BENSERAZIDE HYDROCHLORIDE\LEVODOPA [Concomitant]
     Active Substance: BENSERAZIDE HYDROCHLORIDE\LEVODOPA
     Indication: Product used for unknown indication
     Dosage: STRENGTH:100MG AT 7AM, 9.30AM, 1PM, 3PM
     Route: 048

REACTIONS (16)
  - Hyperkinesia [Not Recovered/Not Resolved]
  - Weight decreased [Not Recovered/Not Resolved]
  - Dyskinesia [Recovered/Resolved]
  - Drug level decreased [Not Recovered/Not Resolved]
  - On and off phenomenon [Recovered/Resolved]
  - Nervousness [Not Recovered/Not Resolved]
  - Tremor [Recovering/Resolving]
  - Anxiety [Not Recovered/Not Resolved]
  - Insomnia [Not Recovered/Not Resolved]
  - Disturbance in attention [Not Recovered/Not Resolved]
  - Bradykinesia [Not Recovered/Not Resolved]
  - Dyskinesia [Unknown]
  - Restlessness [Not Recovered/Not Resolved]
  - Hallucination [Recovered/Resolved]
  - Freezing phenomenon [Not Recovered/Not Resolved]
  - Gait disturbance [Not Recovered/Not Resolved]

NARRATIVE: CASE EVENT DATE: 20240101
